FAERS Safety Report 10079503 (Version 3)
Quarter: 2014Q2

REPORT INFORMATION
  Report Type: Report from Study
  Country: US (occurrence: US)
  Receive Date: 20140415
  Receipt Date: 20140508
  Transmission Date: 20141212
  Serious: Yes (Hospitalization, Other)
  Sender: FDA-Public Use
  Company Number: US-CELGENEUS-163-C5013-14034585

PATIENT
  Age: 35 Year
  Sex: Male
  Weight: 147.3 kg

DRUGS (3)
  1. CC-5013 [Suspect]
     Indication: CHRONIC LYMPHOCYTIC LEUKAEMIA
     Route: 048
     Dates: start: 20110509
  2. CC-5013 [Suspect]
     Route: 048
     Dates: start: 20140224, end: 20140319
  3. CC-5013 [Suspect]
     Route: 048
     Dates: start: 20140324, end: 20140407

REACTIONS (1)
  - Anaplastic astrocytoma [Not Recovered/Not Resolved]
